FAERS Safety Report 9154851 (Version 1)
Quarter: 2013Q1

REPORT INFORMATION
  Report Type: Spontaneous
  Country: US (occurrence: None)
  Receive Date: 20130205
  Receipt Date: 20130205
  Transmission Date: 20140127
  Serious: Yes (Other)
  Sender: FDA-Public Use
  Company Number: 2013P1067383

PATIENT
  Age: 87 Year
  Sex: Female
  Weight: 54.43 kg

DRUGS (14)
  1. DURAMORPH [Suspect]
     Indication: PAIN
     Dates: start: 20120824, end: 20121217
  2. COUMADIN [Concomitant]
  3. DIGOXIN [Concomitant]
  4. ATENOLOL [Concomitant]
  5. ASPIRIN [Concomitant]
  6. METHIMAZOLE [Concomitant]
  7. COZAAR [Concomitant]
  8. ACIPHEX [Concomitant]
  9. DETROL [Concomitant]
  10. CREON [Concomitant]
  11. METANX [Concomitant]
  12. LYRICA [Concomitant]
  13. NASONEX SPRAY [Concomitant]
  14. LEVOXYL [Concomitant]

REACTIONS (13)
  - Implant site swelling [None]
  - Disorientation [None]
  - Burning sensation [None]
  - Feeling hot [None]
  - Hypertension [None]
  - Pollakiuria [None]
  - Implant site erythema [None]
  - Stress [None]
  - Device leakage [None]
  - Frustration [None]
  - Pain [None]
  - Device failure [None]
  - Drug withdrawal syndrome [None]
